FAERS Safety Report 4681180-X (Version None)
Quarter: 2005Q2

REPORT INFORMATION
  Report Type: 
  Country: None (occurrence: None)
  Receive Date: 20050602
  Receipt Date: 20050519
  Transmission Date: 20051028
  Serious: Yes (Other)
  Sender: FDA-Public Use
  Company Number: 05-000353

PATIENT
  Age: 42 Year
  Sex: Female
  Weight: 57.1 kg

DRUGS (1)
  1. NATAFORT (NATAFORT) TABLET, 1UNIT [Suspect]
     Indication: VITAMIN SUPPLEMENTATION
     Dosage: QD, ORAL
     Route: 048
     Dates: start: 20000101

REACTIONS (5)
  - ABORTION SPONTANEOUS [None]
  - BLOOD FOLATE DECREASED [None]
  - CONGENITAL ANOMALY [None]
  - DRUG EXPOSURE DURING PREGNANCY [None]
  - ENZYME ABNORMALITY [None]
